FAERS Safety Report 10697460 (Version 1)
Quarter: 2015Q1

REPORT INFORMATION
  Report Type: Spontaneous
  Country: US (occurrence: None)
  Receive Date: 20150107
  Receipt Date: 20150107
  Transmission Date: 20150721
  Serious: Yes (Other)
  Sender: FDA-Public Use
  Company Number: None

PATIENT
  Age: 22 Year
  Sex: Female
  Weight: 65.77 kg

DRUGS (1)
  1. MIRENA [Suspect]
     Active Substance: LEVONORGESTREL
     Indication: CONTRACEPTION
     Dosage: 1; ONCE EVERY 5 YEARS
     Route: 067
     Dates: start: 20141130, end: 20141218

REACTIONS (4)
  - Dizziness [None]
  - Flatulence [None]
  - Hyperhidrosis [None]
  - Blood glucose decreased [None]

NARRATIVE: CASE EVENT DATE: 20141204
